FAERS Safety Report 5626969-5 (Version None)
Quarter: 2008Q1

REPORT INFORMATION
  Report Type: 
  Country: None (occurrence: None)
  Receive Date: 20080130
  Receipt Date: 20071106
  Transmission Date: 20080703
  Serious: Yes (Other)
  Sender: FDA-Public Use
  Company Number: US-WYE-H01195207

PATIENT
  Age: 60 Year

DRUGS (12)
  1. CORDARONE [Suspect]
     Indication: ATRIAL FIBRILLATION
     Dosage: 400 MG DAILY X 4-6 WEEK
     Dates: start: 20031101, end: 20030101
  2. CORDARONE [Suspect]
     Indication: ATRIAL FIBRILLATION
     Dosage: 400 MG DAILY X 4-6 WEEK
     Dates: start: 20030101, end: 20040301
  3. NITROGLYCERIN ^A.L.^ (GLYCERYL TRINITRATE) [Concomitant]
  4. SYNTHROID [Concomitant]
  5. HUMULIN 70/30 [Concomitant]
  6. LOPRESSOR [Concomitant]
  7. MAXAIR [Concomitant]
  8. LASIX [Concomitant]
  9. ASPIRIN [Concomitant]
  10. CELEBREX [Concomitant]
  11. LISINOPRIL [Concomitant]
  12. COUMADIN [Concomitant]

REACTIONS (1)
  - OPTIC ISCHAEMIC NEUROPATHY [None]
